FAERS Safety Report 5411003-2 (Version None)
Quarter: 2007Q3

REPORT INFORMATION
  Report Type: 
  Country: None (occurrence: None)
  Receive Date: 20070713
  Receipt Date: 20070614
  Transmission Date: 20080115
  Serious: No
  Sender: FDA-Public Use
  Company Number: 2007SP002250

PATIENT
  Age: 80 Year
  Sex: Male
  Weight: 81.6475 kg

DRUGS (5)
  1. LUNESTA [Suspect]
     Indication: INSOMNIA
     Dosage: 3 MG;HS;ORAL 1.5 MG;HS;ORAL
     Route: 048
     Dates: start: 20070601, end: 20070601
  2. LUNESTA [Suspect]
     Indication: INSOMNIA
     Dosage: 3 MG;HS;ORAL 1.5 MG;HS;ORAL
     Route: 048
     Dates: start: 20070601
  3. NORPACE [Concomitant]
  4. VYTORIN [Concomitant]
  5. THYROID TAB [Concomitant]

REACTIONS (1)
  - SOMNOLENCE [None]
